FAERS Safety Report 9160164 (Version 1)
Quarter: 2013Q1

REPORT INFORMATION
  Report Type: Spontaneous
  Country: US (occurrence: US)
  Receive Date: 20130313
  Receipt Date: 20130313
  Transmission Date: 20140127
  Serious: No
  Sender: FDA-Public Use
  Company Number: US-JHP PHARMACEUTICALS, LLC-JHP201200516

PATIENT
  Sex: 0

DRUGS (1)
  1. KETALAR [Suspect]
     Indication: SEDATIVE THERAPY
     Dosage: UNK
     Dates: start: 201210, end: 201210

REACTIONS (1)
  - Drug ineffective [Recovered/Resolved]
